FAERS Safety Report 9958808 (Version 2)
Quarter: 2014Q1

REPORT INFORMATION
  Report Type: Spontaneous
  Country: US (occurrence: US)
  Receive Date: 20140305
  Receipt Date: 20140305
  Transmission Date: 20141002
  Serious: Yes (Hospitalization)
  Sender: FDA-Public Use
  Company Number: US-ABBVIE-13P-163-1077009-00

PATIENT
  Sex: Male
  Weight: 113.5 kg

DRUGS (5)
  1. HUMIRA [Suspect]
     Indication: PSORIASIS
     Route: 058
     Dates: start: 201112, end: 201112
  2. HUMIRA [Suspect]
     Dosage: WEEK 1
  3. HUMIRA [Suspect]
     Route: 058
  4. ALCOHOL [Concomitant]
     Indication: PRODUCT USED FOR UNKNOWN INDICATION
  5. COCAINE [Concomitant]
     Indication: PRODUCT USED FOR UNKNOWN INDICATION

REACTIONS (8)
  - Endocarditis [Unknown]
  - Asthenia [Unknown]
  - Pyrexia [Unknown]
  - Productive cough [Unknown]
  - Fatigue [Unknown]
  - Malaise [Unknown]
  - Lethargy [Unknown]
  - Weight decreased [Unknown]
